FAERS Safety Report 7815095-2 (Version None)
Quarter: 2011Q4

REPORT INFORMATION
  Report Type: 
  Country: None (occurrence: None)
  Receive Date: 20111014
  Receipt Date: 20111014
  Transmission Date: 20120403
  Serious: Yes (Life-Threatening)
  Sender: FDA-Public Use
  Company Number: None

PATIENT
  Age: 48 Year
  Sex: Female
  Weight: 63.049 kg

DRUGS (2)
  1. PROGESTERONE [Concomitant]
  2. ESTRING [Suspect]
     Indication: MENOPAUSE
     Dosage: 1 UNIT
     Route: 067
     Dates: start: 20110818, end: 20110930

REACTIONS (1)
  - TOXIC SHOCK SYNDROME [None]
